FAERS Safety Report 12925955 (Version 1)
Quarter: 2016Q4

REPORT INFORMATION
  Report Type: Spontaneous
  Country: US (occurrence: US)
  Receive Date: 20161108
  Receipt Date: 20161108
  Transmission Date: 20170207
  Serious: No
  Sender: FDA-Public Use
  Company Number: US-SA-2016SA178518

PATIENT
  Sex: Female

DRUGS (12)
  1. BYSTOLIC [Concomitant]
     Active Substance: NEBIVOLOL HYDROCHLORIDE
  2. TRAMADOL. [Concomitant]
     Active Substance: TRAMADOL
     Dosage: STRENGTH: 50 MG
  3. CLONIDINE. [Concomitant]
     Active Substance: CLONIDINE
  4. CLOPIDOGREL [Concomitant]
     Active Substance: CLOPIDOGREL BISULFATE
     Dosage: STRENGTH: 75 MG
  5. MONTELUKAST [Concomitant]
     Active Substance: MONTELUKAST SODIUM
     Dosage: STRENGTH: 10 MG
  6. IPRATROPIUM [Concomitant]
     Active Substance: IPRATROPIUM
     Dosage: SPR 0.03%
  7. PRALUENT [Suspect]
     Active Substance: ALIROCUMAB
     Route: 065
  8. ALIROCUMAB PREFILLED PEN [Concomitant]
     Active Substance: ALIROCUMAB
  9. CLOBETASOL [Concomitant]
     Active Substance: CLOBETASOL
     Dosage: CRE 0.05 %
  10. SYMBICORT [Concomitant]
     Active Substance: BUDESONIDE\FORMOTEROL FUMARATE DIHYDRATE
     Dosage: AER 160-4.5
  11. AMLODIPINE [Concomitant]
     Active Substance: AMLODIPINE BESYLATE
     Dosage: STRENGTH: 10 MG, 5 MG
  12. HYDRALAZINE [Concomitant]
     Active Substance: HYDRALAZINE HYDROCHLORIDE
     Dosage: STRENGTH: 25 MG

REACTIONS (1)
  - Muscle spasms [Recovered/Resolved]
